FAERS Safety Report 24033305 (Version 1)
Quarter: 2024Q3

REPORT INFORMATION
  Report Type: Spontaneous
  Country: GB (occurrence: GB)
  Receive Date: 20240701
  Receipt Date: 20240701
  Transmission Date: 20241016
  Serious: Yes (Life-Threatening, Other)
  Sender: LABORATOIRES SERB
  Company Number: GB-SERB S.A.S.-2158719

PATIENT
  Age: 80 Year
  Sex: Male

DRUGS (7)
  1. DIGIFAB [Suspect]
     Active Substance: OVINE DIGOXIN IMMUNE FAB
     Indication: Toxicity to various agents
  2. DIGOXIN [Concomitant]
     Active Substance: DIGOXIN
  3. ATORVASTATIN CALCIUM [Concomitant]
     Active Substance: ATORVASTATIN CALCIUM
  4. METFORMIN [Concomitant]
     Active Substance: METFORMIN HYDROCHLORIDE
  5. ALLOPURINOL [Concomitant]
     Active Substance: ALLOPURINOL
  6. CARVEDILOL [Concomitant]
     Active Substance: CARVEDILOL
  7. WARFARIN SODIUM [Concomitant]
     Active Substance: WARFARIN SODIUM

REACTIONS (1)
  - Drug ineffective [Recovered/Resolved]
